FAERS Safety Report 5399722-8 (Version None)
Quarter: 2007Q3

REPORT INFORMATION
  Report Type: 
  Country: None (occurrence: None)
  Receive Date: 20070727
  Receipt Date: 20070718
  Transmission Date: 20080115
  Serious: Yes (Other)
  Sender: FDA-Public Use
  Company Number: JP-PFIZER INC-2007060340

PATIENT
  Age: 64 Year
  Sex: Male

DRUGS (4)
  1. DOXAZOSIN MESYLATE [Suspect]
     Dosage: DAILY DOSE:1MG
     Route: 048
  2. CANDESARTAN CILEXETIL [Concomitant]
     Route: 048
  3. NORVASC [Concomitant]
     Route: 048
  4. JUVELA NICOTINATE [Concomitant]
     Route: 048

REACTIONS (1)
  - EMPHYSEMA [None]
